FAERS Safety Report 7366161-X (Version None)
Quarter: 2011Q1

REPORT INFORMATION
  Report Type: 
  Country: None (occurrence: None)
  Receive Date: 20110322
  Receipt Date: 20110308
  Transmission Date: 20110831
  Serious: Yes (Hospitalization)
  Sender: FDA-Public Use
  Company Number: US-JNJFOC-20090707762

PATIENT
  Sex: Female
  Weight: 24 kg

DRUGS (12)
  1. FOLIC ACID [Concomitant]
  2. REMICADE [Suspect]
     Route: 042
  3. METHOTREXATE [Concomitant]
  4. CELEXA [Concomitant]
  5. REMICADE [Suspect]
     Route: 042
  6. REMICADE [Suspect]
     Route: 042
  7. PREDNISONE [Concomitant]
  8. REMICADE [Suspect]
     Indication: CROHN'S DISEASE
     Route: 042
  9. PREDNISONE [Concomitant]
  10. PREVACID [Concomitant]
  11. REMICADE [Suspect]
     Route: 042
  12. REMICADE [Suspect]
     Indication: DRUG DEPENDENCE
     Route: 042

REACTIONS (2)
  - CROHN'S DISEASE [None]
  - CONDITION AGGRAVATED [None]
